FAERS Safety Report 8431955-6 (Version None)
Quarter: 2012Q2

REPORT INFORMATION
  Report Type: 
  Country: None (occurrence: None)
  Receive Date: 20120613
  Receipt Date: 20120110
  Transmission Date: 20120825
  Serious: No
  Sender: FDA-Public Use
  Company Number: US-ASTRAZENECA-2012SE01775

PATIENT
  Sex: Male

DRUGS (2)
  1. RHINOCORT [Suspect]
     Route: 045
  2. BUDESONIDE [Suspect]
     Route: 065

REACTIONS (2)
  - EPISTAXIS [None]
  - NASAL DRYNESS [None]
